FAERS Safety Report 6555072-5 (Version None)
Quarter: 2010Q1

REPORT INFORMATION
  Report Type: 
  Country: None (occurrence: None)
  Receive Date: 20100122
  Receipt Date: 20100107
  Transmission Date: 20100710
  Serious: Yes (Hospitalization)
  Sender: FDA-Public Use
  Company Number: 004190

PATIENT
  Sex: Female
  Weight: 63.5 kg

DRUGS (6)
  1. CIMZIA [Suspect]
     Indication: CROHN'S DISEASE
     Dosage: (SUBCUTANEOUS)
     Route: 058
     Dates: start: 20090101
  2. METHADONE [Concomitant]
  3. ENTOCORT EC [Concomitant]
  4. VITAMIN B-12 [Concomitant]
  5. IRON [Concomitant]
  6. LEXAPRO [Concomitant]

REACTIONS (3)
  - INJECTION SITE MASS [None]
  - MASS [None]
  - PURULENCE [None]
